FAERS Safety Report 4402751-1 (Version None)
Quarter: 2004Q3

REPORT INFORMATION
  Report Type: 
  Country: None (occurrence: None)
  Receive Date: 20040720
  Receipt Date: 20040720
  Transmission Date: 20050211
  Serious: Yes (Hospitalization)
  Sender: FDA-Public Use
  Company Number: None

PATIENT
  Sex: Female
  Weight: 103.4201 kg

DRUGS (9)
  1. REMICADE [Suspect]
     Indication: PSORIATIC ARTHROPATHY
     Dosage: 400 MG Q8WKS IV
     Route: 042
     Dates: start: 20040318, end: 20040426
  2. REMICADE [Suspect]
  3. REMICADE [Suspect]
  4. REMICADE [Suspect]
  5. CALCAN [Concomitant]
  6. ZOMIG [Concomitant]
  7. AMITRIPTYLINE HCL [Concomitant]
  8. IBUPROFEN [Concomitant]
  9. ALEVE [Concomitant]

REACTIONS (9)
  - ARTHRALGIA [None]
  - BODY TEMPERATURE INCREASED [None]
  - CHILLS [None]
  - DYSPNOEA [None]
  - HYPERHIDROSIS [None]
  - JOINT SWELLING [None]
  - LYMPHADENOPATHY [None]
  - NAUSEA [None]
  - NECK PAIN [None]
